FAERS Safety Report 5606686-8 (Version None)
Quarter: 2008Q1

REPORT INFORMATION
  Report Type: 
  Country: None (occurrence: None)
  Receive Date: 20080129
  Receipt Date: 20070815
  Transmission Date: 20080703
  Serious: No
  Sender: FDA-Public Use
  Company Number: A0670668A

PATIENT
  Age: 28 Year
  Sex: Female

DRUGS (1)
  1. COMBIVIR [Suspect]
     Dosage: 1TAB TWICE PER DAY
     Route: 048
     Dates: start: 20070814

REACTIONS (4)
  - DIZZINESS [None]
  - INSOMNIA [None]
  - NAUSEA [None]
  - NIGHTMARE [None]
